FAERS Safety Report 16103832 (Version 2)
Quarter: 2019Q2

REPORT INFORMATION
  Report Type: Spontaneous
  Country: US (occurrence: US)
  Receive Date: 20190322
  Receipt Date: 20190429
  Transmission Date: 20190711
  Serious: No
  Sender: FDA-Public Use
  Company Number: US-PFIZER INC-2019120661

PATIENT
  Age: 66 Year
  Sex: Female
  Weight: 104.3 kg

DRUGS (1)
  1. LYRICA [Suspect]
     Active Substance: PREGABALIN
     Indication: SPINAL STENOSIS
     Dosage: 150 MG, 2X/DAY
     Route: 048
     Dates: start: 2012

REACTIONS (3)
  - Fall [Unknown]
  - Intentional product use issue [Unknown]
  - Arthritis [Unknown]
